FAERS Safety Report 18303484 (Version 2)
Quarter: 2021Q2

REPORT INFORMATION
  Report Type: Spontaneous
  Country: US (occurrence: US)
  Receive Date: 20200924
  Receipt Date: 20210621
  Transmission Date: 20210717
  Serious: Yes (Other)
  Sender: FDA-Public Use
  Company Number: US-SA-2020SA254812

PATIENT

DRUGS (1)
  1. ZANTAC [Suspect]
     Active Substance: RANITIDINE HYDROCHLORIDE
     Dosage: UNK
     Dates: start: 1988, end: 201906

REACTIONS (3)
  - Anxiety [Unknown]
  - Injury [Unknown]
  - Gastric cancer [Unknown]

NARRATIVE: CASE EVENT DATE: 201901
